FAERS Safety Report 7802250-0 (Version None)
Quarter: 2011Q4

REPORT INFORMATION
  Report Type: 
  Country: None (occurrence: None)
  Receive Date: 20111007
  Receipt Date: 20110930
  Transmission Date: 20120403
  Serious: Yes (Hospitalization, Other)
  Sender: FDA-Public Use
  Company Number: US-CELGENEUS-163-21880-11100030

PATIENT
  Sex: Male

DRUGS (11)
  1. ALLOPURINOL [Concomitant]
     Indication: GOUT
     Route: 065
  2. ASPIRIN [Concomitant]
     Indication: THROMBOSIS PROPHYLAXIS
     Dosage: 325 MILLIGRAM
     Route: 065
  3. FLOMAX [Concomitant]
     Route: 065
  4. VITAMIN D [Concomitant]
     Route: 065
  5. BENADRYL [Concomitant]
     Indication: PROPHYLAXIS
     Route: 065
  6. OXYCODON [Concomitant]
     Indication: BACK PAIN
     Route: 065
  7. REVLIMID [Suspect]
     Indication: MULTIPLE MYELOMA
     Dosage: 25 MILLIGRAM
     Route: 048
     Dates: start: 20101201, end: 20110101
  8. SYMBOLTA [Concomitant]
     Route: 065
  9. REVLIMID [Suspect]
     Dosage: 10 MILLIGRAM
     Route: 048
     Dates: start: 20110801
  10. VELCADE [Concomitant]
     Route: 065
     Dates: start: 20101201
  11. DEXAMETHASONE [Concomitant]
     Route: 065
     Dates: start: 20101201

REACTIONS (5)
  - SPINAL COMPRESSION FRACTURE [None]
  - HYPOTENSION [None]
  - OEDEMA PERIPHERAL [None]
  - ABDOMINAL PAIN UPPER [None]
  - RASH [None]
